FAERS Safety Report 24412558 (Version 3)
Quarter: 2025Q2

REPORT INFORMATION
  Report Type: Spontaneous
  Country: DE (occurrence: DE)
  Receive Date: 20241008
  Receipt Date: 20250522
  Transmission Date: 20250717
  Serious: Yes (Hospitalization)
  Sender: ELI LILLY AND COMPANY
  Company Number: DE-ELI_LILLY_AND_COMPANY-DE202409017645

PATIENT
  Age: 63 Year
  Sex: Male
  Weight: 83 kg

DRUGS (2)
  1. OLUMIANT [Suspect]
     Active Substance: BARICITINIB
     Indication: Dermatitis atopic
     Dosage: 4 MG, DAILY
     Route: 048
     Dates: start: 202207
  2. OLUMIANT [Suspect]
     Active Substance: BARICITINIB
     Indication: Alopecia
     Dosage: 4 MG, DAILY (RESTART)
     Route: 048

REACTIONS (4)
  - Benign salivary gland neoplasm [Recovered/Resolved with Sequelae]
  - Parotid abscess [Recovered/Resolved with Sequelae]
  - Taste disorder [Unknown]
  - Post procedural complication [Unknown]

NARRATIVE: CASE EVENT DATE: 20221014
